FAERS Safety Report 24238927 (Version 1)
Quarter: 2024Q3

REPORT INFORMATION
  Report Type: Spontaneous
  Country: CN (occurrence: CN)
  Receive Date: 20240822
  Receipt Date: 20240822
  Transmission Date: 20241016
  Serious: Yes (Other)
  Sender: SANOFI AVENTIS
  Company Number: CN-SA-SAC20240820000283

PATIENT
  Age: 59 Year
  Sex: Male

DRUGS (2)
  1. THYMOGLOBULIN [Suspect]
     Active Substance: LAPINE T-LYMPHOCYTE IMMUNE GLOBULIN
     Indication: Adjuvant therapy
     Dosage: 150 MG, QD
     Route: 041
     Dates: start: 20240627, end: 20240628
  2. THYMOGLOBULIN [Suspect]
     Active Substance: LAPINE T-LYMPHOCYTE IMMUNE GLOBULIN
     Dosage: 150 MG, QD
     Route: 041
     Dates: start: 20240629, end: 20240629

REACTIONS (4)
  - Feeling cold [Recovered/Resolved]
  - Blood pressure fluctuation [Recovered/Resolved]
  - Pyrexia [Recovered/Resolved]
  - Chills [Recovered/Resolved]

NARRATIVE: CASE EVENT DATE: 20240627
